FAERS Safety Report 14232972 (Version 1)
Quarter: 2017Q4

REPORT INFORMATION
  Report Type: Spontaneous
  Country: US (occurrence: US)
  Receive Date: 20171128
  Receipt Date: 20171128
  Transmission Date: 20180321
  Serious: No
  Sender: FDA-Public Use
  Company Number: US-LEADIANT BIOSCIENCES INC-2017STPI000088

PATIENT

DRUGS (13)
  1. TABLOID [Concomitant]
     Active Substance: THIOGUANINE
  2. GABAPENTIN. [Concomitant]
     Active Substance: GABAPENTIN
  3. VIMPAT [Concomitant]
     Active Substance: LACOSAMIDE
  4. ATIVAN [Concomitant]
     Active Substance: LORAZEPAM
  5. LOMUSTINE. [Concomitant]
     Active Substance: LOMUSTINE
  6. RISPERIDONE. [Concomitant]
     Active Substance: RISPERIDONE
  7. FLUOXETINE [Concomitant]
     Active Substance: FLUOXETINE HYDROCHLORIDE
  8. MATULANE [Suspect]
     Active Substance: PROCARBAZINE HYDROCHLORIDE
     Indication: NEOPLASM MALIGNANT
     Dosage: 50 MG, OTHER
     Route: 048
     Dates: start: 20160521
  9. GUANFACINE. [Concomitant]
     Active Substance: GUANFACINE
  10. BACTRIM [Concomitant]
     Active Substance: SULFAMETHOXAZOLE\TRIMETHOPRIM
  11. LYRICA [Concomitant]
     Active Substance: PREGABALIN
  12. ADDERALL [Concomitant]
     Active Substance: AMPHETAMINE ASPARTATE\AMPHETAMINE SULFATE\DEXTROAMPHETAMINE SACCHARATE\DEXTROAMPHETAMINE SULFATE
  13. HYDROCORT                          /00028602/ [Concomitant]

REACTIONS (1)
  - Platelet count decreased [Not Recovered/Not Resolved]

NARRATIVE: CASE EVENT DATE: 201701
